FAERS Safety Report 12555893 (Version 4)
Quarter: 2017Q2

REPORT INFORMATION
  Report Type: Spontaneous
  Country: PL (occurrence: PL)
  Receive Date: 20160714
  Receipt Date: 20170530
  Transmission Date: 20170830
  Serious: Yes (Life-Threatening, Hospitalization, Other)
  Sender: FDA-Public Use
  Company Number: PL-SUN PHARMACEUTICAL INDUSTRIES LTD-2016R1-119850

PATIENT
  Age: 42 Year
  Sex: Male
  Weight: 200 kg

DRUGS (2)
  1. ASPIRIN. [Suspect]
     Active Substance: ASPIRIN
     Indication: PRODUCT USED FOR UNKNOWN INDICATION
     Dosage: UNK
     Route: 065
  2. DOXYCYLINE [Concomitant]
     Active Substance: DOXYCYCLINE
     Indication: PHARYNGITIS
     Dosage: UNK
     Route: 065
     Dates: start: 2015

REACTIONS (8)
  - Helicobacter infection [Unknown]
  - Upper gastrointestinal haemorrhage [Recovered/Resolved]
  - Prescription drug used without a prescription [Unknown]
  - Fatigue [Unknown]
  - Gastric ulcer haemorrhage [Unknown]
  - Melaena [Unknown]
  - Loss of consciousness [Unknown]
  - Asthenia [Unknown]

NARRATIVE: CASE EVENT DATE: 2015
